FAERS Safety Report 7265041-8 (Version None)
Quarter: 2011Q1

REPORT INFORMATION
  Report Type: 
  Country: None (occurrence: None)
  Receive Date: 20110131
  Receipt Date: 20110125
  Transmission Date: 20110831
  Serious: Yes (Death, Hospitalization, Other)
  Sender: FDA-Public Use
  Company Number: US-ASTELLAS-2011US000397

PATIENT

DRUGS (5)
  1. METHYLPREDNISOLONE [Concomitant]
     Indication: RENAL AND LIVER TRANSPLANT
     Dosage: UNK
     Route: 065
     Dates: start: 20060101
  2. BASILIXIMAB [Concomitant]
     Indication: RENAL AND LIVER TRANSPLANT
     Dosage: UNK
     Route: 065
     Dates: start: 20060101
  3. SOLU-MEDROL [Concomitant]
     Indication: RENAL AND LIVER TRANSPLANT
     Dosage: UNK
     Route: 065
     Dates: start: 20060101
  4. PROGRAF [Suspect]
     Indication: RENAL AND LIVER TRANSPLANT
     Dosage: UNK
     Route: 065
     Dates: start: 20060101
  5. HEPATITIS B IMMUNE GLOBULIN (HUMAN) [Concomitant]
     Indication: PRODUCT USED FOR UNKNOWN INDICATION
     Dosage: UNK
     Route: 065
     Dates: start: 20060101

REACTIONS (11)
  - ACUTE RESPIRATORY FAILURE [None]
  - MULTI-ORGAN FAILURE [None]
  - POST PROCEDURAL MYOCARDIAL INFARCTION [None]
  - DRUG RESISTANCE [None]
  - PSEUDOMONAL SEPSIS [None]
  - KIDNEY TRANSPLANT REJECTION [None]
  - CYTOMEGALOVIRUS HEPATITIS [None]
  - SEPSIS [None]
  - COLITIS [None]
  - ENTEROCOCCAL SEPSIS [None]
  - PNEUMONIA [None]
